FAERS Safety Report 8207024-7 (Version None)
Quarter: 2012Q1

REPORT INFORMATION
  Report Type: 
  Country: None (occurrence: None)
  Receive Date: 20120314
  Receipt Date: 20120305
  Transmission Date: 20120608
  Serious: Yes (Other)
  Sender: FDA-Public Use
  Company Number: US-US-EMD SERONO, INC.-7117017

PATIENT
  Sex: Female

DRUGS (2)
  1. UNSPECIFIED [Concomitant]
  2. REBIF [Suspect]
     Indication: MULTIPLE SCLEROSIS
     Route: 058
     Dates: start: 20101202

REACTIONS (4)
  - HEADACHE [None]
  - BASAL CELL CARCINOMA [None]
  - PRECANCEROUS CELLS PRESENT [None]
  - INJECTION SITE MASS [None]
